FAERS Safety Report 7637466-X (Version None)
Quarter: 2011Q3

REPORT INFORMATION
  Report Type: 
  Country: None (occurrence: None)
  Receive Date: 20110726
  Receipt Date: 20110719
  Transmission Date: 20111222
  Serious: Yes (Other)
  Sender: FDA-Public Use
  Company Number: PHHY2011DE64804

PATIENT
  Sex: Female

DRUGS (3)
  1. EXTAVIA [Suspect]
     Indication: MULTIPLE SCLEROSIS
     Dosage: 62.5 UG, QOD
     Route: 058
     Dates: end: 20110511
  2. EXTAVIA [Suspect]
     Dosage: 125 UG, QOD
     Route: 058
     Dates: start: 20110513, end: 20110515
  3. EXTAVIA [Suspect]
     Dosage: 62.5 UG, QOD
     Route: 058
     Dates: start: 20110515

REACTIONS (7)
  - OEDEMA MUCOSAL [None]
  - PYREXIA [None]
  - ASTHMA [None]
  - TONGUE DISORDER [None]
  - INFLUENZA LIKE ILLNESS [None]
  - BURNING SENSATION [None]
  - PAIN IN EXTREMITY [None]
